FAERS Safety Report 7329984-9 (Version None)
Quarter: 2011Q1

REPORT INFORMATION
  Report Type: 
  Country: None (occurrence: None)
  Receive Date: 20110218
  Receipt Date: 20110215
  Transmission Date: 20110831
  Serious: Yes (Life-Threatening, Hospitalization)
  Sender: FDA-Public Use
  Company Number: 2011SP007151

PATIENT
  Age: 45 Year
  Sex: Female

DRUGS (16)
  1. HEPARIN SODIUM [Suspect]
     Indication: PRODUCT USED FOR UNKNOWN INDICATION
     Dosage: 5000 IU;SC
     Route: 058
  2. MIDAZOLAM (MIDAZOLAM /00634101/) [Suspect]
     Indication: PRODUCT USED FOR UNKNOWN INDICATION
     Dosage: 1 MG;IM
     Route: 030
  3. SUFENTANIL CITRATE [Suspect]
     Indication: PRODUCT USED FOR UNKNOWN INDICATION
     Dosage: 5 ML
  4. NEXIUM [Concomitant]
  5. PROPOFOL [Suspect]
     Indication: PRODUCT USED FOR UNKNOWN INDICATION
     Dosage: 20 ML
  6. DIOVAN HCT [Concomitant]
  7. VOLUVEN [Concomitant]
  8. RINGERS INJECTION IN PLASTIC CONTAINER [Suspect]
     Indication: PRODUCT USED FOR UNKNOWN INDICATION
  9. DEXAMETHASONE [Concomitant]
  10. ANCEF [Concomitant]
  11. PHENYLEPHRINE HCL [Concomitant]
  12. PLASMA [Concomitant]
  13. ZEMURON [Suspect]
     Indication: PRODUCT USED FOR UNKNOWN INDICATION
     Dosage: 50 MG;IV
     Route: 042
  14. SODIUM CHLORIDE (SODIUM CHLORIDE /00075401/) [Suspect]
     Indication: PRODUCT USED FOR UNKNOWN INDICATION
  15. CALCIUM GLUCONATE [Concomitant]
  16. FLAGYL [Concomitant]

REACTIONS (3)
  - INTERNATIONAL NORMALISED RATIO INCREASED [None]
  - INTRA-ABDOMINAL HAEMORRHAGE [None]
  - PROTHROMBIN LEVEL ABNORMAL [None]
